FAERS Safety Report 5141968-8 (Version None)
Quarter: 2006Q4

REPORT INFORMATION
  Report Type: 
  Country: None (occurrence: None)
  Receive Date: 20061102
  Receipt Date: 20060623
  Transmission Date: 20070319
  Serious: Yes (Other)
  Sender: FDA-Public Use
  Company Number: PHEH2006US08198

PATIENT
  Age: 67 Year
  Sex: Female

DRUGS (2)
  1. MIACALCIN [Suspect]
     Indication: OSTEOPOROSIS
     Dosage: 200 IU, QD
     Dates: start: 20040101, end: 20060601
  2. FOSAMAX [Suspect]
     Indication: OSTEOPOROSIS
     Dosage: UNK, QMO
     Route: 048
     Dates: start: 20010101, end: 20060601

REACTIONS (4)
  - FAILURE OF IMPLANT [None]
  - GINGIVAL INFECTION [None]
  - OSTEOMYELITIS [None]
  - OSTEONECROSIS [None]
